FAERS Safety Report 6864950-9 (Version None)
Quarter: 2010Q3

REPORT INFORMATION
  Report Type: 
  Country: None (occurrence: None)
  Receive Date: 20100721
  Receipt Date: 20080704
  Transmission Date: 20110219
  Serious: No
  Sender: FDA-Public Use
  Company Number: US-PFIZER INC-2008031938

PATIENT
  Sex: Female
  Weight: 113.63 kg

DRUGS (7)
  1. CHANTIX [Suspect]
     Indication: SMOKING CESSATION THERAPY
     Dates: start: 20080330
  2. METFORMIN [Concomitant]
  3. ACTOS [Concomitant]
  4. NORVASC [Concomitant]
  5. FEXOFENADINE [Concomitant]
  6. HYDROCHLOROTHIAZIDE [Concomitant]
  7. ALBUTEROL [Concomitant]
     Indication: ASTHMA

REACTIONS (1)
  - PLEURITIC PAIN [None]
